FAERS Safety Report 13117656 (Version 1)
Quarter: 2017Q1

REPORT INFORMATION
  Report Type: Report from Study
  Country: GB (occurrence: GB)
  Receive Date: 20170116
  Receipt Date: 20170116
  Transmission Date: 20170428
  Serious: Yes (Other)
  Sender: FDA-Public Use
  Company Number: GB-GLAXOSMITHKLINE-GB2016165494

PATIENT
  Age: 59 Year
  Sex: Female

DRUGS (6)
  1. QVAR 100 (BECLOMETASONE) [Concomitant]
     Indication: ASTHMA
     Dosage: 200 004 BID
     Route: 055
     Dates: start: 20161122
  2. NYSTAN [Concomitant]
     Active Substance: NYSTATIN
     Indication: ORAL CANDIDIASIS
     Dosage: 4 012 QID
     Route: 048
     Dates: start: 20161025, end: 20161103
  3. FLUTICASONE FUROATE + VILANTEROL TRIFENATATE [Suspect]
     Active Substance: FLUTICASONE FUROATE\VILANTEROL TRIFENATATE
     Indication: ASTHMA
     Dosage: 100/25 UG DAILY
     Route: 055
     Dates: start: 20150928, end: 20161005
  4. FLUTICASONE FUROATE + VILANTEROL TRIFENATATE [Suspect]
     Active Substance: FLUTICASONE FUROATE\VILANTEROL TRIFENATATE
     Dosage: 92/22 UG DAILY
     Dates: start: 20161005, end: 20161107
  5. AVAMYS NASAL SPRAY (FLUTICASONE FUROATE) [Concomitant]
     Indication: NASAL OBSTRUCTION
     Dosage: 2 SPR OD
     Route: 045
     Dates: start: 20161107
  6. STERIMAR HYPERTONIC NASAL SPRAY [Concomitant]
     Indication: NASAL OBSTRUCTION
     Dosage: 1 SPR QID
     Route: 045
     Dates: start: 20161107

REACTIONS (1)
  - Reflux laryngitis [Recovered/Resolved]

NARRATIVE: CASE EVENT DATE: 20160913
